FAERS Safety Report 5373252-1 (Version None)
Quarter: 2007Q2

REPORT INFORMATION
  Report Type: 
  Country: None (occurrence: None)
  Receive Date: 20070628
  Receipt Date: 20070625
  Transmission Date: 20071010
  Serious: Yes (Death, Disabling)
  Sender: FDA-Public Use
  Company Number: PHRM2007FR01721

PATIENT
  Age: 66 Year
  Sex: Female

DRUGS (8)
  1. ZOMETA [Suspect]
     Indication: METASTASES TO BONE
     Route: 042
     Dates: start: 20030604, end: 20030724
  2. ZOMETA [Suspect]
     Dosage: UNK, UNK
     Dates: start: 20040122, end: 20060101
  3. ARIMIDEX [Suspect]
     Dosage: UNK, UNK
     Route: 048
     Dates: start: 20040330, end: 20040830
  4. CAELYX [Suspect]
     Route: 042
     Dates: start: 20050525, end: 20060623
  5. EVISTA [Concomitant]
     Dates: start: 20040122
  6. BONDRONAT ^ROCHE^ [Concomitant]
     Indication: BREAST CANCER METASTATIC
     Dates: start: 20060303
  7. NAVELBINE [Concomitant]
     Dosage: 4 COURSES
     Dates: start: 20030319, end: 20031203
  8. FASLODEX [Concomitant]

REACTIONS (12)
  - BONE DISORDER [None]
  - BONE LESION [None]
  - BONE PAIN [None]
  - BONE SCAN ABNORMAL [None]
  - BREATH ODOUR [None]
  - DEATH [None]
  - OESOPHAGITIS [None]
  - ORAL CANDIDIASIS [None]
  - OSTEONECROSIS [None]
  - STOMATITIS [None]
  - TONGUE ULCERATION [None]
  - TOOTHACHE [None]
